FAERS Safety Report 14299833 (Version 2)
Quarter: 2018Q1

REPORT INFORMATION
  Report Type: Spontaneous
  Country: US (occurrence: US)
  Receive Date: 20171219
  Receipt Date: 20180326
  Transmission Date: 20180509
  Serious: No
  Sender: FDA-Public Use
  Company Number: US-INCYTE CORPORATION-2017IN010603

PATIENT

DRUGS (2)
  1. JAKAFI [Suspect]
     Active Substance: RUXOLITINIB
     Dosage: 15 MG, QOD
     Route: 048
     Dates: start: 20161122
  2. JAKAFI [Suspect]
     Active Substance: RUXOLITINIB
     Dosage: 15 MG, QOD
     Route: 048
     Dates: start: 20151201

REACTIONS (6)
  - Gingivitis [Unknown]
  - Blood blister [Unknown]
  - Tooth infection [Unknown]
  - Pigmentation disorder [Unknown]
  - Inappropriate schedule of drug administration [Unknown]
  - Oral herpes [Unknown]
